FAERS Safety Report 10232783 (Version 2)
Quarter: 2014Q2

REPORT INFORMATION
  Report Type: Spontaneous
  Country: CA (occurrence: CA)
  Receive Date: 20140612
  Receipt Date: 20140623
  Transmission Date: 20141212
  Serious: Yes (Other)
  Sender: FDA-Public Use
  Company Number: PHHY2014CA071656

PATIENT
  Age: 39 Year
  Sex: Female

DRUGS (1)
  1. NEORAL [Suspect]
     Indication: HEART AND LUNG TRANSPLANT

REACTIONS (2)
  - Ectopic pregnancy [Unknown]
  - Maternal exposure during pregnancy [Unknown]
